FAERS Safety Report 9541106 (Version 3)
Quarter: 2014Q1

REPORT INFORMATION
  Report Type: Report from Study
  Country: CA (occurrence: CA)
  Receive Date: 20130923
  Receipt Date: 20140304
  Transmission Date: 20141002
  Serious: Yes (Hospitalization)
  Sender: FDA-Public Use
  Company Number: CA-ROCHE-1276527

PATIENT
  Sex: Male

DRUGS (1)
  1. XOLAIR [Suspect]
     Indication: ASTHMA
     Dosage: ONGOING
     Route: 065
     Dates: start: 20130620

REACTIONS (3)
  - Lung disorder [Recovering/Resolving]
  - Asthma [Not Recovered/Not Resolved]
  - Drug ineffective [Unknown]
